FAERS Safety Report 4296975-4 (Version None)
Quarter: 2004Q1

REPORT INFORMATION
  Report Type: 
  Country: None (occurrence: None)
  Receive Date: 20040213
  Receipt Date: 20040130
  Transmission Date: 20041129
  Serious: Yes (Other)
  Sender: FDA-Public Use
  Company Number: FR-SHR-04-021122

PATIENT
  Age: 53 Year
  Sex: Female

DRUGS (5)
  1. SOTALOL HCL [Suspect]
     Dosage: 160 MG, 1X/DAY, ORAL  ; 80 MG, 1X/DAY, ORAL
     Route: 048
     Dates: start: 20000101, end: 20040127
  2. SOTALOL HCL [Suspect]
     Dosage: 160 MG, 1X/DAY, ORAL  ; 80 MG, 1X/DAY, ORAL
     Route: 048
     Dates: start: 20040127
  3. FENOFIBRATE [Suspect]
     Dosage: 300 MG ORAL
     Route: 048
     Dates: start: 20010101, end: 20031215
  4. FENOFIBRATE [Suspect]
     Dosage: 300 MG ORAL
     Route: 048
     Dates: start: 20031220, end: 20040112
  5. FENOFIBRATE [Suspect]
     Dosage: 300 MG ORAL
     Route: 048
     Dates: start: 20031215, end: 20031220

REACTIONS (2)
  - ECZEMA [None]
  - TOXIC SKIN ERUPTION [None]
